FAERS Safety Report 6424990-0 (Version None)
Quarter: 2009Q4

REPORT INFORMATION
  Report Type: 
  Country: None (occurrence: None)
  Receive Date: 20091103
  Receipt Date: 20091021
  Transmission Date: 20100525
  Serious: Yes (Hospitalization)
  Sender: FDA-Public Use
  Company Number: FR-PFIZER INC-2009276635

PATIENT
  Age: 58 Year

DRUGS (7)
  1. CAMPTOSAR [Suspect]
     Dosage: 360 MG, CYCLIC ON DAY 1 AND 8
     Route: 042
     Dates: start: 20090623
  2. ERBITUX [Concomitant]
     Dosage: 1000 MG, CYCLIC ON DAY 1 AND 8
     Route: 042
     Dates: start: 20090623
  3. ERBITUX [Concomitant]
     Dosage: UNK
     Dates: start: 20090713
  4. SODIUM CHLORIDE [Concomitant]
     Dosage: UNK
     Dates: start: 20090713
  5. ONDANSETRON [Concomitant]
     Dosage: UNK
     Route: 042
     Dates: start: 20090713
  6. SOLU-MEDROL [Concomitant]
     Dosage: UNK
     Route: 042
     Dates: start: 20090713
  7. POLARAMINE [Concomitant]
     Dosage: UNK
     Route: 042
     Dates: start: 20090713

REACTIONS (1)
  - FEBRILE BONE MARROW APLASIA [None]
